FAERS Safety Report 21360079 (Version 3)
Quarter: 2022Q3

REPORT INFORMATION
  Report Type: Report from Study
  Country: US (occurrence: US)
  Receive Date: 20220921
  Receipt Date: 20220929
  Transmission Date: 20221026
  Serious: No
  Sender: FDA-Public Use
  Company Number: US-NOVARTISTESTPH-NVSC2022US213679

PATIENT
  Sex: Female

DRUGS (1)
  1. KESIMPTA [Suspect]
     Active Substance: OFATUMUMAB
     Indication: Multiple sclerosis
     Dosage: 20 MG
     Route: 058
     Dates: start: 20220918

REACTIONS (8)
  - Fatigue [Unknown]
  - Herpes zoster [Unknown]
  - Swelling face [Unknown]
  - Toothache [Unknown]
  - Mouth swelling [Unknown]
  - Dry mouth [Unknown]
  - Palpitations [Unknown]
  - Pain [Unknown]
